FAERS Safety Report 13812943 (Version 10)
Quarter: 2017Q4

REPORT INFORMATION
  Report Type: Spontaneous
  Country: US (occurrence: US)
  Receive Date: 20170729
  Receipt Date: 20171212
  Transmission Date: 20180320
  Serious: Yes (Other)
  Sender: FDA-Public Use
  Company Number: PHEH2017US023685

PATIENT
  Sex: Female
  Weight: 90.7 kg

DRUGS (3)
  1. ONDANSETRON [Suspect]
     Active Substance: ONDANSETRON
     Indication: VOMITING IN PREGNANCY
     Dosage: 01 DF, UNK
     Route: 048
     Dates: start: 20070906
  2. ZOFRAN [Suspect]
     Active Substance: ONDANSETRON HYDROCHLORIDE
     Indication: VOMITING IN PREGNANCY
     Dosage: 01 DF, UNK
     Route: 048
     Dates: start: 20070924, end: 200803
  3. ONDANSETRON HYDROCHLORIDE. [Suspect]
     Active Substance: ONDANSETRON HYDROCHLORIDE
     Indication: VOMITING IN PREGNANCY
     Dosage: 04 MG PER 02 ML, UNK
     Route: 042
     Dates: start: 20070831, end: 2008

REACTIONS (13)
  - Major depression [Unknown]
  - Nasal congestion [Unknown]
  - Rhinitis allergic [Unknown]
  - Arthralgia [Unknown]
  - Product use in unapproved indication [Unknown]
  - Lacrimation increased [Unknown]
  - Anaemia [Unknown]
  - Upper respiratory tract infection [Unknown]
  - Injury [Unknown]
  - Eye pruritus [Unknown]
  - Pain in extremity [Unknown]
  - Maternal exposure during pregnancy [Unknown]
  - Rhinorrhoea [Unknown]
